FAERS Safety Report 18599733 (Version 1)
Quarter: 2020Q4

REPORT INFORMATION
  Report Type: Spontaneous
  Country: US (occurrence: US)
  Receive Date: 20201210
  Receipt Date: 20201210
  Transmission Date: 20210114
  Serious: No
  Sender: FDA-Public Use
  Company Number: US-BIOGEN-2020BI00954676

PATIENT
  Sex: Female

DRUGS (1)
  1. TECFIDERA [Suspect]
     Active Substance: DIMETHYL FUMARATE
     Indication: MULTIPLE SCLEROSIS
     Route: 065
     Dates: start: 20151008

REACTIONS (5)
  - Musculoskeletal disorder [Unknown]
  - Back pain [Unknown]
  - Fall [Recovered/Resolved]
  - Pain in extremity [Unknown]
  - Balance disorder [Unknown]
